FAERS Safety Report 7412370-0 (Version None)
Quarter: 2011Q2

REPORT INFORMATION
  Report Type: 
  Country: None (occurrence: None)
  Receive Date: 20110413
  Receipt Date: 20110406
  Transmission Date: 20111010
  Serious: Yes (Death, Hospitalization)
  Sender: FDA-Public Use
  Company Number: JP-AMGEN-JPNCT2011009546

PATIENT
  Age: 78 Year
  Sex: Female

DRUGS (5)
  1. IRINOTECAN HCL [Concomitant]
     Indication: COLORECTAL CANCER
     Route: 041
     Dates: start: 20101109
  2. CALCIUM LEVOFOLINATE [Concomitant]
     Indication: COLORECTAL CANCER
     Route: 041
     Dates: start: 20101109
  3. FLUOROURACIL [Concomitant]
     Route: 041
     Dates: start: 20101109
  4. FLUOROURACIL [Concomitant]
     Indication: COLORECTAL CANCER
     Route: 041
     Dates: start: 20101109
  5. PANITUMUMAB [Suspect]
     Indication: COLORECTAL CANCER
     Dosage: UNK UNK, Q2WK
     Route: 041
     Dates: start: 20101109

REACTIONS (2)
  - CYSTITIS HAEMORRHAGIC [None]
  - COLORECTAL CANCER [None]
